FAERS Safety Report 25188232 (Version 1)
Quarter: 2025Q2

REPORT INFORMATION
  Report Type: Spontaneous
  Country: IN (occurrence: IN)
  Receive Date: 20250411
  Receipt Date: 20250411
  Transmission Date: 20250716
  Serious: Yes (Other)
  Sender: UNICHEM
  Company Number: IN-UNICHEM LABORATORIES LIMITED-UNI-2025-IN-001788

PATIENT

DRUGS (4)
  1. PHENYTOIN SODIUM [Interacting]
     Active Substance: PHENYTOIN SODIUM
     Indication: Epilepsy
     Route: 065
  2. CIMETIDINE [Interacting]
     Active Substance: CIMETIDINE
     Indication: Epilepsy
     Route: 065
  3. ASPIRIN [Concomitant]
     Active Substance: ASPIRIN
     Indication: Cardiovascular disorder
     Route: 065
  4. LOVASTATIN [Concomitant]
     Active Substance: LOVASTATIN
     Indication: Cardiovascular disorder
     Route: 065

REACTIONS (6)
  - Toxicity to various agents [Recovering/Resolving]
  - Fall [Unknown]
  - Secondary cerebellar degeneration [Unknown]
  - Drug interaction [Unknown]
  - Cerebellar ataxia [Recovering/Resolving]
  - Abdominal discomfort [Unknown]
